FAERS Safety Report 5370327-8 (Version None)
Quarter: 2007Q2

REPORT INFORMATION
  Report Type: 
  Country: None (occurrence: None)
  Receive Date: 20070626
  Receipt Date: 20061102
  Transmission Date: 20071010
  Serious: No
  Sender: FDA-Public Use
  Company Number: US-AMGEN-KDL198932

PATIENT
  Age: 90 Year
  Sex: Male

DRUGS (2)
  1. PROCRIT [Suspect]
     Indication: RENAL FAILURE CHRONIC
     Dates: start: 20060816
  2. ARANESP [Suspect]
     Indication: RENAL FAILURE CHRONIC
     Dates: start: 20050706, end: 20060816

REACTIONS (4)
  - GOUT [None]
  - INGROWING NAIL [None]
  - LOCALISED INFECTION [None]
  - THERAPEUTIC RESPONSE DECREASED [None]
